FAERS Safety Report 5765784-9 (Version None)
Quarter: 2008Q2

REPORT INFORMATION
  Report Type: 
  Country: None (occurrence: None)
  Receive Date: 20080606
  Receipt Date: 20080522
  Transmission Date: 20081010
  Serious: Yes (Death)
  Sender: FDA-Public Use
  Company Number: 2008AL005835

PATIENT
  Age: 91 Year
  Sex: Female

DRUGS (2)
  1. DIGOXIN [Suspect]
  2. COUMADIN [Concomitant]

REACTIONS (3)
  - DIZZINESS [None]
  - HIP FRACTURE [None]
  - PNEUMONIA [None]
